FAERS Safety Report 9901112 (Version 2)
Quarter: 2014Q1

REPORT INFORMATION
  Report Type: Spontaneous
  Country: US (occurrence: US)
  Receive Date: 20140217
  Receipt Date: 20140217
  Transmission Date: 20141002
  Serious: No
  Sender: FDA-Public Use
  Company Number: US-PFIZER INC-2013332407

PATIENT
  Age: 47 Year
  Sex: Female
  Weight: 56.69 kg

DRUGS (17)
  1. ENBREL [Suspect]
     Dosage: UNK
     Route: 065
  2. DOXYCYCLINE HYCLATE [Suspect]
     Dosage: UNK
  3. COMPAZINE [Suspect]
     Dosage: UNK
  4. LEVAQUIN [Suspect]
     Dosage: UNK
  5. MOTRIN [Suspect]
     Dosage: UNK
  6. ADDERALL [Concomitant]
     Dosage: 20 MG, UNK
  7. CALCIUM [Concomitant]
     Dosage: 600 MG, UNK
  8. CHLOROQUINE PHOSPHATE [Concomitant]
     Dosage: 250 MG, UNK
  9. IRON [Concomitant]
     Dosage: UNK
  10. LASIX [Concomitant]
     Dosage: 40 MG, UNK
  11. NITROFURANTOIN [Concomitant]
     Dosage: 100 MG, UNK
  12. OXYCODONE HCL [Concomitant]
     Dosage: UNK
  13. PLAQUENIL [Concomitant]
     Dosage: 200 MG, UNK
  14. TRILEPTAL [Concomitant]
     Dosage: 150 MG, UNK
  15. VITAMIN B-12 [Concomitant]
     Dosage: VITAMIN B-12 1000 UNK, UNK
  16. VITAMIN D [Concomitant]
     Dosage: VITAMIN D 1000UNK, UNK
  17. XANAX [Concomitant]
     Dosage: 0.5 MG, UNK

REACTIONS (1)
  - Drug hypersensitivity [Unknown]
